FAERS Safety Report 5517418-6 (Version None)
Quarter: 2007Q4

REPORT INFORMATION
  Report Type: 
  Country: None (occurrence: None)
  Receive Date: 20071108
  Receipt Date: 20070817
  Transmission Date: 20080405
  Serious: Yes (Hospitalization)
  Sender: FDA-Public Use
  Company Number: 2007S1000319

PATIENT
  Sex: Female
  Weight: 86.4 kg

DRUGS (1)
  1. CUBICIN [Suspect]
     Indication: STAPHYLOCOCCAL ABSCESS
     Dosage: 5.8 MG/KG;

REACTIONS (1)
  - BLOOD CREATINE PHOSPHOKINASE INCREASED [None]
